FAERS Safety Report 7336059 (Version 5)
Quarter: 2012Q4

REPORT INFORMATION
  Report Type: 
  Country: DE (occurrence: DE)
  Receive Date: 20100323
  Receipt Date: 20121001
  Transmission Date: 20130627
  Serious: Yes (Death, Life-Threatening)
  Sender: FDA-Public Use
  Company Number: DE-PFIZER INC-2010030742

PATIENT
  Age: 59 Year
  Sex: Male

DRUGS (38)
  1. LYRICA [Suspect]
     Indication: DEPRESSION
     Dosage: UNK DF, 3x/day
     Route: 048
     Dates: start: 20080128, end: 20080201
  2. FLUCONAZOLE [Suspect]
     Indication: ARTHRITIS
     Dosage: 400 mg, 1x/day
     Route: 042
     Dates: start: 20080114, end: 20080128
  3. HYDROCORTISONE SODIUM SUCCINATE [Suspect]
     Indication: SEPSIS
     Dosage: UNK
     Route: 042
     Dates: start: 20080129, end: 20080129
  4. TAZOBAC [Suspect]
     Indication: ARTHRITIS
     Dosage: 20 mg, 3x/day
     Route: 042
     Dates: start: 20071228
  5. TAZOBAC [Suspect]
     Dosage: 4.5 g, 2x/day
     Route: 042
     Dates: end: 20080131
  6. LORAZEPAM [Suspect]
     Dosage: 1.25 mg; 1 mg; UNK
     Route: 048
     Dates: start: 20080123, end: 20080124
  7. CIPROFLOXACIN [Suspect]
     Indication: ARTHRITIS
     Dosage: 200 mg, 1x/day
     Route: 042
     Dates: start: 20080114
  8. CIPROFLOXACIN [Suspect]
     Dosage: 200 mg, 2x/day
     Route: 042
  9. SODIUM CHLORIDE [Suspect]
     Indication: ELECTROLYTE SUBSTITUTION THERAPY
     Dosage: UNK
     Route: 042
     Dates: start: 20080109, end: 20080124
  10. SODIUM CHLORIDE [Suspect]
     Dosage: UNK
     Dates: start: 20080203
  11. POTASSIUM CHLORIDE [Suspect]
     Indication: ELECTROLYTE SUBSTITUTION THERAPY
     Dosage: UNK
     Route: 042
     Dates: start: 20080127, end: 20080128
  12. POTASSIUM CHLORIDE [Suspect]
     Dosage: UNK
     Dates: start: 20080130
  13. GLUCOSE [Suspect]
     Indication: ELECTROLYTE SUBSTITUTION THERAPY
     Dosage: UNK
     Route: 042
     Dates: start: 20080124, end: 20080129
  14. GLUCOSE [Suspect]
     Dosage: UNK
     Dates: start: 20080204
  15. HEPARIN [Suspect]
     Indication: THROMBOSIS PROPHYLAXIS
     Dosage: UNK
     Route: 042
     Dates: start: 20080117
  16. FURORESE [Suspect]
     Indication: POLYURIA
     Dosage: 250 mg, UNK
     Route: 042
     Dates: start: 20080117, end: 20080131
  17. DUROGESIC [Suspect]
     Indication: PAIN
     Dosage: 50ug/h, 25ug/h, unknown
     Route: 062
     Dates: start: 20071202
  18. BELOC ZOK [Suspect]
     Indication: HYPERTENSION
     Dosage: UNK
     Route: 048
     Dates: start: 20080127
  19. BELOC [Suspect]
     Indication: HYPERTENSION
     Dosage: 5 mg, UNK
     Route: 042
     Dates: start: 20080126, end: 20080127
  20. DORMICUM [Suspect]
     Indication: RESTLESSNESS
     Dosage: 3 x 2 mg once daily
     Route: 042
     Dates: start: 20080130, end: 20080130
  21. DORMICUM [Suspect]
     Dosage: 2 x 1 mg once daily
     Route: 042
     Dates: start: 20080201
  22. CALCIUM CHLORIDE [Suspect]
     Indication: ELECTROLYTE SUBSTITUTION THERAPY
     Dosage: 10 mg, UNK
     Route: 042
     Dates: start: 20080127
  23. NEXIUM [Suspect]
     Indication: PROPHYLAXIS AGAINST GASTROINTESTINAL ULCER
     Dosage: 40 mg, 1x/day
     Route: 048
     Dates: start: 20080120
  24. AKRINOR [Suspect]
     Indication: HYPOTENSION
     Dosage: 3 ml, 2 ml, UNK
     Route: 042
     Dates: start: 20080123, end: 20080124
  25. PROPOFOL [Suspect]
     Indication: STUPOR
     Dosage: UNK
     Route: 042
     Dates: start: 20080123, end: 20080127
  26. ULTIVA [Suspect]
     Indication: STUPOR
     Dosage: 5 mg, UNK
     Route: 042
     Dates: start: 20080123, end: 20080127
  27. GELAFUNDIN [Suspect]
     Indication: ELECTROLYTE SUBSTITUTION THERAPY
     Dosage: 4 %, UNK
     Route: 042
     Dates: start: 20080204
  28. JONOSTERIL [Suspect]
     Indication: ELECTROLYTE SUBSTITUTION THERAPY
     Dosage: UNK
     Route: 042
     Dates: start: 20080124, end: 20080131
  29. KETAMINE [Suspect]
     Indication: STUPOR
     Dosage: 1500 mg, UNK
     Route: 042
     Dates: start: 20080124
  30. KETAMINE [Suspect]
     Dosage: 50 mg, UNK
     Route: 042
     Dates: start: 20080128
  31. KETAMINE [Suspect]
     Dosage: 40 mg, UNK
     Route: 042
     Dates: start: 20080130
  32. KETAMINE [Suspect]
     Dosage: 30 mg, UNK
     Route: 042
     Dates: start: 20080201
  33. DULCOLAX [Suspect]
     Indication: CONSTIPATION
     Dosage: 10 mg, single
     Route: 054
     Dates: start: 20080127, end: 20080127
  34. INSULIN [Suspect]
     Indication: HYPERGLYCAEMIA
     Dosage: UNK
     Route: 042
     Dates: start: 20080128, end: 20080203
  35. L-THYROXIN [Suspect]
     Indication: HYPOTHYROIDISM
     Dosage: 125 ug, 150 ug, unknown
     Route: 048
     Dates: start: 20080129
  36. L-THYROXIN [Suspect]
     Dosage: UNK
     Route: 048
  37. DIPIDOLOR [Suspect]
     Indication: PAIN
     Dosage: 7.5 mg, 3.75 mg
     Route: 042
     Dates: start: 20080202
  38. NORMOFUNDIN [Suspect]
     Indication: ELECTROLYTE SUBSTITUTION THERAPY
     Dosage: UNK
     Dates: start: 20100202

REACTIONS (2)
  - Stevens-Johnson syndrome [Fatal]
  - Toxic epidermal necrolysis [Fatal]
